FAERS Safety Report 10393178 (Version 1)
Quarter: 2014Q3

REPORT INFORMATION
  Report Type: Report from Study
  Country: JP (occurrence: JP)
  Receive Date: 20140819
  Receipt Date: 20140819
  Transmission Date: 20150326
  Serious: Yes (Hospitalization)
  Sender: FDA-Public Use
  Company Number: JP-009507513-1408JPN009237

PATIENT
  Age: 1 Month
  Sex: Female
  Weight: 2.35 kg

DRUGS (8)
  1. DIAZOXIDE CAPSULES 25 MG ^MSD^ [Suspect]
     Active Substance: DIAZOXIDE
     Dosage: DAILY DOSAGE UNKNOWN
     Route: 048
     Dates: start: 201305, end: 20130602
  2. DIAZOXIDE CAPSULES 25 MG ^MSD^ [Suspect]
     Active Substance: DIAZOXIDE
     Dosage: 13.33 MG, TID
     Route: 048
     Dates: start: 20131112, end: 20140131
  3. DIAZOXIDE CAPSULES 25 MG ^MSD^ [Suspect]
     Active Substance: DIAZOXIDE
     Dosage: DAILY DOSAGE UNKNOWN
     Route: 048
     Dates: start: 201307, end: 20130706
  4. DIAZOXIDE CAPSULES 25 MG ^MSD^ [Suspect]
     Active Substance: DIAZOXIDE
     Indication: HYPOGLYCAEMIA
     Dosage: DAILY DOSAGE UNKNOWN
     Route: 048
     Dates: start: 201305, end: 20130524
  5. DIAZOXIDE CAPSULES 25 MG ^MSD^ [Suspect]
     Active Substance: DIAZOXIDE
     Dosage: 6.67 MG, TID
     Route: 048
     Dates: start: 20140201, end: 20140209
  6. DIAZOXIDE CAPSULES 25 MG ^MSD^ [Suspect]
     Active Substance: DIAZOXIDE
     Dosage: 10 MG, TID
     Route: 048
     Dates: start: 20130802, end: 20131111
  7. DIAZOXIDE CAPSULES 25 MG ^MSD^ [Suspect]
     Active Substance: DIAZOXIDE
     Dosage: DAILY DOSAGE UNKNOWN
     Route: 048
     Dates: start: 2013, end: 20130801
  8. DIAZOXIDE CAPSULES 25 MG ^MSD^ [Suspect]
     Active Substance: DIAZOXIDE
     Dosage: 13.33 MG, TID
     Route: 048
     Dates: start: 20140209, end: 20140212

REACTIONS (1)
  - Cardiac failure congestive [Recovered/Resolved]

NARRATIVE: CASE EVENT DATE: 20130602
